FAERS Safety Report 4744540-4 (Version None)
Quarter: 2005Q3

REPORT INFORMATION
  Report Type: 
  Country: None (occurrence: None)
  Receive Date: 20050809
  Receipt Date: 20050203
  Transmission Date: 20060218
  Serious: Yes (Disabling)
  Sender: FDA-Public Use
  Company Number: 2005-125009-NL

PATIENT
  Age: 87 Year
  Sex: Female

DRUGS (7)
  1. REMERON [Suspect]
     Indication: INSOMNIA
     Dosage: ORAL, Q. HS
     Route: 048
     Dates: start: 20030801, end: 20031101
  2. RITALIN [Suspect]
     Indication: DECREASED APPETITE
     Dosage: ORAL
     Route: 048
     Dates: start: 20030801, end: 20031101
  3. EFFEXOR [Suspect]
     Indication: DEPRESSION
     Dosage: ORAL
     Route: 048
     Dates: start: 20030801, end: 20031101
  4. METOPROLOL [Concomitant]
  5. SYNTHETIC MORPHINE [Concomitant]
  6. TYLENOL  /USA/ [Concomitant]
  7. ECOTRIN [Concomitant]

REACTIONS (6)
  - COW'S MILK INTOLERANCE [None]
  - DIARRHOEA [None]
  - DRUG INEFFECTIVE FOR UNAPPROVED INDICATION [None]
  - DRY MOUTH [None]
  - SALIVARY HYPERSECRETION [None]
  - SLEEP APNOEA SYNDROME [None]
